FAERS Safety Report 5897235-8 (Version None)
Quarter: 2008Q3

REPORT INFORMATION
  Report Type: 
  Country: None (occurrence: None)
  Receive Date: 20080923
  Receipt Date: 20080911
  Transmission Date: 20090109
  Serious: Yes (Death, Hospitalization, Other)
  Sender: FDA-Public Use
  Company Number: 52338

PATIENT
  Age: 68 Year
  Sex: Female

DRUGS (2)
  1. FLUCONAZOLE [Suspect]
     Indication: CRYPTOCOCCOSIS
     Dosage: 400MG DAILY
  2. FLUCONAZOLE [Suspect]
     Indication: NERVOUS SYSTEM DISORDER
     Dosage: 400MG DAILY

REACTIONS (9)
  - BLOOD MAGNESIUM DECREASED [None]
  - BLOOD POTASSIUM DECREASED [None]
  - CARDIAC ARREST [None]
  - ELECTROMECHANICAL DISSOCIATION [None]
  - GRAND MAL CONVULSION [None]
  - NERVOUS SYSTEM DISORDER [None]
  - TORSADE DE POINTES [None]
  - VENTRICULAR FIBRILLATION [None]
  - VENTRICULAR TACHYCARDIA [None]
